FAERS Safety Report 19055742 (Version 1)
Quarter: 2021Q1

REPORT INFORMATION
  Report Type: Report from Study
  Country: FR (occurrence: FR)
  Receive Date: 20210324
  Receipt Date: 20210324
  Transmission Date: 20210420
  Serious: Yes (Hospitalization)
  Sender: FDA-Public Use
  Company Number: FR-TAKEDA-FR201816008

PATIENT

DRUGS (7)
  1. ZYVOXID [Concomitant]
     Active Substance: LINEZOLID
     Indication: ANTIBIOTIC PROPHYLAXIS
  2. TEDUGLUTIDE [Suspect]
     Active Substance: TEDUGLUTIDE
     Indication: SHORT-BOWEL SYNDROME
     Dosage: 0.05 MG/KG (2.6 MG), 1X/DAY:QD
     Route: 065
     Dates: start: 20180217
  3. TEDUGLUTIDE [Suspect]
     Active Substance: TEDUGLUTIDE
     Indication: SHORT-BOWEL SYNDROME
     Dosage: 0.05 MG/KG (2.6 MG), 1X/DAY:QD
     Route: 065
     Dates: start: 20180217
  4. BICARBONATE [Concomitant]
     Active Substance: SODIUM BICARBONATE
     Indication: LACTIC ACIDOSIS
  5. ENOXAPARIN SODIUM. [Concomitant]
     Active Substance: ENOXAPARIN SODIUM
  6. TEDUGLUTIDE [Suspect]
     Active Substance: TEDUGLUTIDE
     Indication: SHORT-BOWEL SYNDROME
     Dosage: 0.05 MG/KG (2.6 MG), 1X/DAY:QD
     Route: 065
     Dates: start: 20180217
  7. TEDUGLUTIDE [Suspect]
     Active Substance: TEDUGLUTIDE
     Indication: SHORT-BOWEL SYNDROME
     Dosage: 0.05 MG/KG (2.6 MG), 1X/DAY:QD
     Route: 065
     Dates: start: 20180217

REACTIONS (4)
  - Deep vein thrombosis [Recovered/Resolved]
  - Device related infection [Recovered/Resolved]
  - Catheter site inflammation [Recovered/Resolved]
  - Catheter site pain [Unknown]

NARRATIVE: CASE EVENT DATE: 20180421
